FAERS Safety Report 24674147 (Version 1)
Quarter: 2024Q4

REPORT INFORMATION
  Report Type: Spontaneous
  Country: US (occurrence: US)
  Receive Date: 20241128
  Receipt Date: 20241128
  Transmission Date: 20250115
  Serious: No
  Sender: AJANTA PHARMA USA INC
  Company Number: US-AJANTA-2024AJA00164

PATIENT
  Age: 76 Year
  Sex: Female
  Weight: 105 kg

DRUGS (6)
  1. DULOXETINE [Suspect]
     Active Substance: DULOXETINE
     Indication: Depression
     Dates: start: 202408, end: 20240917
  2. OZEMPIC [Concomitant]
     Active Substance: SEMAGLUTIDE
  3. Metformin/ Jardiance [Concomitant]
  4. Vitamin B pill [Concomitant]
  5. ROSUVASTATIN [Concomitant]
     Active Substance: ROSUVASTATIN
  6. SYNTHROID [Concomitant]
     Active Substance: LEVOTHYROXINE SODIUM

REACTIONS (9)
  - Eye irritation [Unknown]
  - Swelling face [Unknown]
  - Skin swelling [Unknown]
  - Eye pruritus [Unknown]
  - Eye swelling [Unknown]
  - Pruritus [Unknown]
  - Flushing [Unknown]
  - Vision blurred [Not Recovered/Not Resolved]
  - Urticaria [Unknown]

NARRATIVE: CASE EVENT DATE: 20240901
